FAERS Safety Report 24704469 (Version 1)
Quarter: 2024Q4

REPORT INFORMATION
  Report Type: Spontaneous
  Country: CN (occurrence: CN)
  Receive Date: 20241206
  Receipt Date: 20241206
  Transmission Date: 20250115
  Serious: Yes (Hospitalization, Disabling, Other)
  Sender: BAXTER
  Company Number: None

PATIENT
  Age: 54 Year
  Sex: Female

DRUGS (2)
  1. CYCLOPHOSPHAMIDE [Suspect]
     Active Substance: CYCLOPHOSPHAMIDE
     Indication: Invasive ductal breast carcinoma
     Dosage: 1 G, ONE TIME IN ONE DAY, CHEMOTHERAPY OF THE TENTH CYCLE
     Route: 041
     Dates: start: 20240924, end: 20240924
  2. DOXORUBICIN HYDROCHLORIDE [Suspect]
     Active Substance: DOXORUBICIN HYDROCHLORIDE
     Indication: Invasive ductal breast carcinoma
     Dosage: 100 MG, ONE TIME IN ONE DAY, CHEMOTHERAPY OF THE TENTH CYCLE
     Route: 041
     Dates: start: 20240924, end: 20240924

REACTIONS (4)
  - Condition aggravated [Unknown]
  - Invasive ductal breast carcinoma [Unknown]
  - Myelosuppression [Unknown]
  - White blood cell count decreased [Unknown]

NARRATIVE: CASE EVENT DATE: 20240926
